FAERS Safety Report 16388798 (Version 2)
Quarter: 2019Q3

REPORT INFORMATION
  Report Type: Spontaneous
  Country: FR (occurrence: FR)
  Receive Date: 20190604
  Receipt Date: 20190722
  Transmission Date: 20191004
  Serious: Yes (Hospitalization)
  Sender: FDA-Public Use
  Company Number: FR-AMREGENT-20191105

PATIENT
  Age: 44 Year
  Sex: Female
  Weight: 55 kg

DRUGS (4)
  1. FERINJECT [Suspect]
     Active Substance: FERRIC CARBOXYMALTOSE
     Dosage: 1 GM, 1 IN 1 TOTAL
     Route: 042
     Dates: start: 20190426, end: 20190426
  2. DIFFU K [Concomitant]
     Active Substance: POTASSIUM CHLORIDE
     Dosage: UNKNOWN
     Route: 048
  3. STELARA [Concomitant]
     Active Substance: USTEKINUMAB
     Dosage: UNKNOWN
     Route: 048
  4. INEXIUM [Concomitant]
     Active Substance: ESOMEPRAZOLE
     Dosage: UNKNOWN
     Route: 048

REACTIONS (4)
  - Myositis [Recovering/Resolving]
  - Hepatitis [Recovered/Resolved]
  - Rhabdomyolysis [Recovering/Resolving]
  - Acute kidney injury [Recovered/Resolved]

NARRATIVE: CASE EVENT DATE: 20190426
